FAERS Safety Report 5368089-3 (Version None)
Quarter: 2007Q2

REPORT INFORMATION
  Report Type: 
  Country: None (occurrence: None)
  Receive Date: 20070622
  Receipt Date: 20070614
  Transmission Date: 20071010
  Serious: Yes (Hospitalization)
  Sender: FDA-Public Use
  Company Number: IT-MERCK-0706USA02763

PATIENT
  Sex: Male

DRUGS (5)
  1. HYDROCORTONE [Suspect]
     Indication: ADRENOGENITAL SYNDROME
     Route: 048
  2. HYDROCORTONE [Suspect]
     Route: 048
  3. HYDROCORTONE [Suspect]
     Route: 048
  4. FLUDROCORTISONE [Concomitant]
     Route: 065
  5. FLUDROCORTISONE [Concomitant]
     Route: 065

REACTIONS (7)
  - ANOREXIA [None]
  - ARRHYTHMIA [None]
  - ASTHENIA [None]
  - CARDIAC MURMUR [None]
  - GROWTH RETARDATION [None]
  - LEFT VENTRICULAR HYPERTROPHY [None]
  - MITRAL VALVE INCOMPETENCE [None]
